FAERS Safety Report 7215316-3 (Version None)
Quarter: 2011Q1

REPORT INFORMATION
  Report Type: 
  Country: None (occurrence: None)
  Receive Date: 20110107
  Receipt Date: 20101129
  Transmission Date: 20110831
  Serious: No
  Sender: FDA-Public Use
  Company Number: B0690828A

PATIENT
  Age: 31 Year
  Sex: Female

DRUGS (1)
  1. RELENZA [Suspect]
     Route: 055

REACTIONS (2)
  - DRUG EXPOSURE DURING PREGNANCY [None]
  - LIVE BIRTH [None]
